FAERS Safety Report 16775367 (Version 1)
Quarter: 2019Q3

REPORT INFORMATION
  Report Type: Report from Study
  Country: CN (occurrence: CN)
  Receive Date: 20190905
  Receipt Date: 20190905
  Transmission Date: 20191005
  Serious: Yes (Death, Other)
  Sender: FDA-Public Use
  Company Number: CN-BAYER-2019-161998

PATIENT
  Age: 84 Year
  Sex: Male

DRUGS (3)
  1. TIGECYCLINE. [Concomitant]
     Active Substance: TIGECYCLINE
  2. MOXIFLOXACIN. [Suspect]
     Active Substance: MOXIFLOXACIN
     Indication: KLEBSIELLA INFECTION
  3. IMIPENEM [Concomitant]
     Active Substance: IMIPENEM

REACTIONS (2)
  - Pathogen resistance [None]
  - Death [Fatal]
